FAERS Safety Report 6139054-3 (Version None)
Quarter: 2009Q1

REPORT INFORMATION
  Report Type: 
  Country: None (occurrence: None)
  Receive Date: 20090324
  Receipt Date: 20090320
  Transmission Date: 20090719
  Serious: Yes (Death)
  Sender: FDA-Public Use
  Company Number: 2009AL001651

PATIENT
  Sex: Female

DRUGS (1)
  1. DIGOXIN [Suspect]

REACTIONS (9)
  - ANHEDONIA [None]
  - ANTISOCIAL BEHAVIOUR [None]
  - ANXIETY [None]
  - DEFORMITY [None]
  - ECONOMIC PROBLEM [None]
  - INJURY [None]
  - LOSS OF EMPLOYMENT [None]
  - PAIN [None]
  - THERAPEUTIC AGENT TOXICITY [None]
